FAERS Safety Report 23510042 (Version 1)
Quarter: 2024Q1

REPORT INFORMATION
  Report Type: Spontaneous
  Country: US (occurrence: US)
  Receive Date: 20240211
  Receipt Date: 20240211
  Transmission Date: 20240410
  Serious: No
  Sender: FDA-Public Use
  Company Number: US-SA-SAC20240202000071

PATIENT
  Age: 68 Year
  Sex: Female

DRUGS (2)
  1. DUPIXENT [Suspect]
     Active Substance: DUPILUMAB
     Indication: Eczema
     Dosage: 600 MG, 1X
     Route: 058
     Dates: start: 20231120, end: 20231120
  2. DUPIXENT [Suspect]
     Active Substance: DUPILUMAB
     Indication: Bronchial hyperreactivity
     Dosage: 300 MG, QOW
     Route: 058
     Dates: start: 20231204

REACTIONS (6)
  - Eye pruritus [Recovering/Resolving]
  - Condition aggravated [Recovering/Resolving]
  - Rash [Recovering/Resolving]
  - Eye irritation [Recovering/Resolving]
  - Condition aggravated [Recovering/Resolving]
  - Product use in unapproved indication [Unknown]

NARRATIVE: CASE EVENT DATE: 20231120
